FAERS Safety Report 7177682-7 (Version None)
Quarter: 2010Q4

REPORT INFORMATION
  Report Type: 
  Country: None (occurrence: None)
  Receive Date: 20101123
  Receipt Date: 20100928
  Transmission Date: 20110411
  Serious: No
  Sender: FDA-Public Use
  Company Number: 016539

PATIENT
  Sex: Female
  Weight: 72.6 kg

DRUGS (4)
  1. CIMZIA [Suspect]
     Indication: CROHN'S DISEASE
     Dosage: (400 MG 1X/4 WEEKS SUBCUTANEOUS)
     Route: 058
     Dates: start: 20100505
  2. AZOR [Concomitant]
  3. COZAAR [Concomitant]
  4. PREVACID [Concomitant]

REACTIONS (6)
  - ABDOMINAL PAIN [None]
  - AUTOIMMUNE DISORDER [None]
  - DIARRHOEA [None]
  - INFLUENZA [None]
  - NAUSEA [None]
  - VOMITING [None]
